FAERS Safety Report 5173435-X (Version None)
Quarter: 2006Q4

REPORT INFORMATION
  Report Type: 
  Country: None (occurrence: None)
  Receive Date: 20061206
  Receipt Date: 20061130
  Transmission Date: 20070319
  Serious: Yes (Other)
  Sender: FDA-Public Use
  Company Number: 218824

PATIENT
  Age: 44 Year
  Sex: Female
  Weight: 89.1 kg

DRUGS (2)
  1. OMALIZUMAB (OMALIZUMAB)  PWDR + SOLVENT, INJECTION SOLN, 150MG [Suspect]
     Indication: ASTHMA
     Dosage: SEE IMAGE
     Dates: start: 20050114, end: 20050715
  2. OMALIZUMAB (OMALIZUMAB)  PWDR + SOLVENT, INJECTION SOLN, 150MG [Suspect]
     Indication: ASTHMA
     Dosage: SEE IMAGE
     Dates: start: 20051202

REACTIONS (5)
  - DERMATITIS [None]
  - DERMATITIS ATOPIC [None]
  - DERMATITIS CONTACT [None]
  - DRUG ERUPTION [None]
  - HYPERPLASIA [None]
